FAERS Safety Report 12342652 (Version 2)
Quarter: 2016Q4

REPORT INFORMATION
  Report Type: Spontaneous
  Country: US (occurrence: EE)
  Receive Date: 20160506
  Receipt Date: 20161116
  Transmission Date: 20170207
  Serious: Yes (Life-Threatening, Hospitalization, Other)
  Sender: FDA-Public Use
  Company Number: EE-009507513-1605EST001092

PATIENT
  Age: 81 Year
  Sex: Male
  Weight: 80 kg

DRUGS (9)
  1. ASPIRIN CARDIO [Concomitant]
     Active Substance: ASPIRIN
     Dosage: GASTRO-RESISTANT TABLET
     Route: 048
     Dates: start: 20160404, end: 20160407
  2. BRILIQUE [Suspect]
     Active Substance: TICAGRELOR
     Indication: CORONARY ARTERY THROMBOSIS
     Dosage: 180 MG, QD
     Route: 048
     Dates: start: 20160407
  3. ADENURIC [Concomitant]
     Active Substance: FEBUXOSTAT
     Dosage: UNKNOWN
  4. LACIDIPINE [Concomitant]
     Active Substance: LACIDIPINE
     Dosage: UNKNOWN
  5. ACTELSAR HCT [Concomitant]
     Dosage: UNKNOWN
  6. METFORMIN [Concomitant]
     Active Substance: METFORMIN HYDROCHLORIDE
     Dosage: UNKNOWN
     Route: 048
  7. EPTIFIBATIDE. [Suspect]
     Active Substance: EPTIFIBATIDE
     Indication: CORONARY ARTERY THROMBOSIS
     Dosage: 180 MG, UNKNOWN
     Route: 042
     Dates: start: 20160407, end: 20160408
  8. CLEXANE (ENOXAPARIN SODIUM) [Concomitant]
     Active Substance: ENOXAPARIN SODIUM
     Dosage: UNK
     Dates: start: 20160404, end: 20160404
  9. CLOPIDOGREL [Concomitant]
     Active Substance: CLOPIDOGREL BISULFATE
     Dosage: UNKNOWN
     Route: 048
     Dates: start: 20160404, end: 20160407

REACTIONS (2)
  - Urinary bladder haemorrhage [Recovered/Resolved]
  - Device occlusion [Recovering/Resolving]

NARRATIVE: CASE EVENT DATE: 20160407
